FAERS Safety Report 4434561-3 (Version None)
Quarter: 2004Q3

REPORT INFORMATION
  Report Type: 
  Country: None (occurrence: None)
  Receive Date: 20040721
  Receipt Date: 20031113
  Transmission Date: 20050211
  Serious: Yes (Hospitalization)
  Sender: FDA-Public Use
  Company Number: WAES 0311USA01832

PATIENT
  Age: 80 Year
  Sex: Female

DRUGS (3)
  1. VIOXX [Suspect]
     Indication: PAIN
     Dosage: PO
     Route: 048
     Dates: start: 20031107, end: 20031110
  2. HYDRALAZINE HCL [Concomitant]
  3. METOPROLOL [Concomitant]

REACTIONS (2)
  - MEDICATION ERROR [None]
  - RENAL FAILURE [None]
